FAERS Safety Report 5717953-1 (Version None)
Quarter: 2008Q2

REPORT INFORMATION
  Report Type: 
  Country: None (occurrence: None)
  Receive Date: 20080425
  Receipt Date: 20080422
  Transmission Date: 20081010
  Serious: Yes (Hospitalization)
  Sender: FDA-Public Use
  Company Number: A0705529A

PATIENT
  Age: 46 Year
  Sex: Female
  Weight: 56 kg

DRUGS (3)
  1. PARNATE [Suspect]
     Indication: DEPRESSION
     Dosage: 10MG TWICE PER DAY
     Route: 048
     Dates: start: 20060701, end: 20080215
  2. RIVOTRIL [Concomitant]
     Route: 048
     Dates: start: 20060401
  3. DOGMATIL [Concomitant]
     Route: 048
     Dates: start: 20061201

REACTIONS (9)
  - CHAPPED LIPS [None]
  - DIZZINESS [None]
  - ERYTHEMA [None]
  - EYE PRURITUS [None]
  - HYPERHIDROSIS [None]
  - OEDEMA PERIPHERAL [None]
  - PALPITATIONS [None]
  - TACHYCARDIA [None]
  - TREMOR [None]
